FAERS Safety Report 15026995 (Version 1)
Quarter: 2018Q2

REPORT INFORMATION
  Report Type: Spontaneous
  Country: US (occurrence: US)
  Receive Date: 20180619
  Receipt Date: 20180619
  Transmission Date: 20180711
  Serious: Yes (Other)
  Sender: FDA-Public Use
  Company Number: US-ROCHE-2138041

PATIENT
  Age: 72 Year
  Sex: Female
  Weight: 68.1 kg

DRUGS (2)
  1. ESBRIET [Suspect]
     Active Substance: PIRFENIDONE
     Dosage: 3 PILLS 3 TIMES DAILY
     Route: 048
     Dates: start: 201706
  2. ESBRIET [Suspect]
     Active Substance: PIRFENIDONE
     Indication: IDIOPATHIC PULMONARY FIBROSIS
     Dosage: THREE CAPSULES THREE TIMES DAILY ;ONGOING: YES
     Route: 048
     Dates: start: 201707

REACTIONS (8)
  - Alopecia [Not Recovered/Not Resolved]
  - Fatigue [Not Recovered/Not Resolved]
  - Rash [Recovered/Resolved]
  - Memory impairment [Not Recovered/Not Resolved]
  - Ileus [Recovered/Resolved]
  - Appendicitis perforated [Recovered/Resolved]
  - Dyspnoea [Not Recovered/Not Resolved]
  - Overdose [Unknown]

NARRATIVE: CASE EVENT DATE: 201711
